FAERS Safety Report 4417528-0 (Version None)
Quarter: 2004Q3

REPORT INFORMATION
  Report Type: 
  Country: None (occurrence: None)
  Receive Date: 20040804
  Receipt Date: 20040730
  Transmission Date: 20050211
  Serious: Yes (Other)
  Sender: FDA-Public Use
  Company Number: 002261

PATIENT
  Age: 56 Year
  Sex: Female

DRUGS (4)
  1. MEDROXYPROGESTERONE ACETATE [Suspect]
     Dates: start: 19970501, end: 19991201
  2. PREMARIN [Suspect]
     Dates: start: 19950101, end: 19960101
  3. MEDROXYPROGESTERONE ACETATE [Suspect]
     Dates: start: 19960101, end: 19970401
  4. ESTRADIOL [Suspect]
     Dates: start: 19970501, end: 19991201

REACTIONS (1)
  - BREAST CANCER FEMALE [None]
